FAERS Safety Report 4730671-1 (Version None)
Quarter: 2005Q3

REPORT INFORMATION
  Report Type: 
  Country: None (occurrence: None)
  Receive Date: 20050725
  Receipt Date: 20050302
  Transmission Date: 20060218
  Serious: No
  Sender: FDA-Public Use
  Company Number: USA050392205

PATIENT
  Age: 8 Year
  Sex: Male
  Weight: 20 kg

DRUGS (1)
  1. STRATTERA [Suspect]
     Indication: DISTRACTIBILITY
     Dosage: 35 MG DAY
     Dates: start: 20040101

REACTIONS (5)
  - ABNORMAL BEHAVIOUR [None]
  - ANOREXIA [None]
  - DRUG INEFFECTIVE [None]
  - PRESCRIBED OVERDOSE [None]
  - STOMACH DISCOMFORT [None]
